FAERS Safety Report 4719081-0 (Version None)
Quarter: 2005Q3

REPORT INFORMATION
  Report Type: 
  Country: None (occurrence: None)
  Receive Date: 20050719
  Receipt Date: 20050705
  Transmission Date: 20060218
  Serious: Yes (Death, Life-Threatening, Hospitalization)
  Sender: FDA-Public Use
  Company Number: FR_050706771

PATIENT
  Age: 61 Year
  Sex: Male
  Weight: 66 kg

DRUGS (10)
  1. GEMZAR [Suspect]
     Indication: NON-SMALL CELL LUNG CANCER
     Dates: start: 20041026, end: 20041214
  2. ALIMTA [Suspect]
     Indication: NON-SMALL CELL LUNG CANCER
     Dosage: 875 MG/1 OTHER
     Dates: start: 20050520, end: 20050520
  3. CARBOPLATIN [Concomitant]
  4. FOLIC ACID [Concomitant]
  5. VITAMIN B-12 [Concomitant]
  6. LEVOTHYROXINE SODIUM [Concomitant]
  7. PREDNISOLONE [Concomitant]
  8. FLURBIPROFEN [Concomitant]
  9. TRIATEC (RAMIPRIL/00885601/) [Concomitant]
  10. BISOPROLOL FUMARATE [Concomitant]

REACTIONS (14)
  - ATRIAL FIBRILLATION [None]
  - CARDIAC FAILURE [None]
  - EPISTAXIS [None]
  - FEBRILE BONE MARROW APLASIA [None]
  - GENERAL PHYSICAL HEALTH DETERIORATION [None]
  - HAEMOPTYSIS [None]
  - HYPERCALCAEMIA [None]
  - HYPERTHYROIDISM [None]
  - HYPOTHYROIDISM [None]
  - MYOCARDIAL ISCHAEMIA [None]
  - PANCYTOPENIA [None]
  - PYREXIA [None]
  - SEPSIS [None]
  - THROMBOCYTOPENIA [None]
